FAERS Safety Report 13664893 (Version 1)
Quarter: 2017Q2

REPORT INFORMATION
  Report Type: Other
  Country: AU (occurrence: AU)
  Receive Date: 20170619
  Receipt Date: 20170619
  Transmission Date: 20170830
  Serious: Yes (Other)
  Sender: FDA-Public Use
  Company Number: AU-MEDAC PHARMA, INC.-2022222

PATIENT
  Age: 87 Year
  Sex: Male

DRUGS (1)
  1. METHOTREXATE. [Suspect]
     Active Substance: METHOTREXATE
     Indication: PSORIASIS

REACTIONS (2)
  - Necrosis [Recovering/Resolving]
  - Infected skin ulcer [Recovering/Resolving]
